FAERS Safety Report 22289459 (Version 1)
Quarter: 2023Q2

REPORT INFORMATION
  Report Type: Spontaneous
  Country: US (occurrence: None)
  Receive Date: 20230504
  Receipt Date: 20230504
  Transmission Date: 20230721
  Serious: Yes (Death, Life-Threatening, Hospitalization, Other)
  Sender: FDA-Public Use
  Company Number: None

PATIENT
  Age: 88 Year
  Sex: Male
  Weight: 85.5 kg

DRUGS (6)
  1. ARTIFICIAL TEARS LUBRICANT EYE DROPS (CARBOXYMETHYLCELLULOSE SODIUM) [Suspect]
     Active Substance: CARBOXYMETHYLCELLULOSE SODIUM
     Indication: Dry eye
     Dosage: FREQUENCY : AS NEEDED;?
     Route: 047
     Dates: start: 20220201, end: 20220920
  2. DEVICE [Concomitant]
     Active Substance: DEVICE
  3. ELIQUIS [Concomitant]
     Active Substance: APIXABAN
  4. VITAMINS [Concomitant]
     Active Substance: VITAMINS
  5. VITAMIN D3 [Concomitant]
     Active Substance: CHOLECALCIFEROL
  6. Cril Oil [Concomitant]

REACTIONS (4)
  - Septic shock [None]
  - Vision blurred [None]
  - Visual impairment [None]
  - Eye disorder [None]

NARRATIVE: CASE EVENT DATE: 20220609
